FAERS Safety Report 5254192-5 (Version None)
Quarter: 2007Q1

REPORT INFORMATION
  Report Type: 
  Country: None (occurrence: None)
  Receive Date: 20070302
  Receipt Date: 20070219
  Transmission Date: 20070707
  Serious: Yes (Hospitalization)
  Sender: FDA-Public Use
  Company Number: US-ROCHE-482231

PATIENT
  Age: 75 Year
  Sex: Female
  Weight: 76.8 kg

DRUGS (1)
  1. BONIVA [Suspect]
     Indication: DRUG USE FOR UNKNOWN INDICATION
     Dosage: DOSAGE REGIMEN PROVIDED AS ^MONTH.^  STRENGTH WAS ENTERED AS 150 UNITS.
     Route: 048
     Dates: end: 20070120

REACTIONS (5)
  - APHASIA [None]
  - CEREBROVASCULAR ACCIDENT [None]
  - CONFUSIONAL STATE [None]
  - MENTAL STATUS CHANGES [None]
  - SYNCOPE [None]
